FAERS Safety Report 24993150 (Version 1)
Quarter: 2025Q1

REPORT INFORMATION
  Report Type: Spontaneous
  Country: SA (occurrence: SA)
  Receive Date: 20250221
  Receipt Date: 20250221
  Transmission Date: 20250409
  Serious: Yes (Hospitalization)
  Sender: ALEXION PHARMACEUTICALS
  Company Number: SA-AstraZeneca-CH-00809498A

PATIENT

DRUGS (1)
  1. SOLIRIS [Suspect]
     Active Substance: ECULIZUMAB
     Indication: Atypical haemolytic uraemic syndrome

REACTIONS (4)
  - Chromaturia [Recovered/Resolved]
  - Urine output decreased [Recovered/Resolved]
  - Platelet count decreased [Recovered/Resolved]
  - Creatinine renal clearance increased [Recovered/Resolved]
